FAERS Safety Report 24790797 (Version 1)
Quarter: 2024Q4

REPORT INFORMATION
  Report Type: Spontaneous
  Country: CN (occurrence: CN)
  Receive Date: 20241230
  Receipt Date: 20241230
  Transmission Date: 20250115
  Serious: Yes (Hospitalization)
  Sender: NOVARTIS
  Company Number: CN-002147023-NVSC2024CN245139

PATIENT
  Age: 61 Year
  Sex: Male

DRUGS (1)
  1. SACUBITRIL\VALSARTAN [Suspect]
     Active Substance: SACUBITRIL\VALSARTAN
     Indication: Hypertension
     Dosage: 100.000 MG, QD
     Route: 048
     Dates: start: 20241120

REACTIONS (7)
  - Blood creatinine increased [Recovering/Resolving]
  - Disease recurrence [Unknown]
  - Chest pain [Unknown]
  - Chest discomfort [Unknown]
  - Palpitations [Unknown]
  - Arteriosclerosis coronary artery [Unknown]
  - Type 2 diabetes mellitus [Unknown]

NARRATIVE: CASE EVENT DATE: 20241209
